FAERS Safety Report 24389357 (Version 2)
Quarter: 2024Q4

REPORT INFORMATION
  Report Type: Report from Study
  Country: US (occurrence: US)
  Receive Date: 20241003
  Receipt Date: 20241009
  Transmission Date: 20250115
  Serious: Yes (Other)
  Sender: ABBVIE
  Company Number: US-ABBVIE-5942711

PATIENT
  Age: 56 Year
  Sex: Female
  Weight: 122 kg

DRUGS (1)
  1. HUMIRA [Suspect]
     Active Substance: ADALIMUMAB
     Indication: Rheumatoid arthritis
     Route: 058
     Dates: start: 20230706

REACTIONS (2)
  - Middle ear effusion [Recovered/Resolved]
  - Tympanic membrane perforation [Recovered/Resolved]

NARRATIVE: CASE EVENT DATE: 20240101
